FAERS Safety Report 7007009-2 (Version None)
Quarter: 2010Q3

REPORT INFORMATION
  Report Type: 
  Country: None (occurrence: None)
  Receive Date: 20100915
  Receipt Date: 20100907
  Transmission Date: 20110219
  Serious: Yes (Other)
  Sender: FDA-Public Use
  Company Number: 2010SP047915

PATIENT

DRUGS (2)
  1. INTEGRILIN [Suspect]
     Indication: ARTERIAL CATHETERISATION
  2. LOVENOX [Suspect]
     Indication: ARTERIAL CATHETERISATION
     Dosage: .5 MG/KG

REACTIONS (2)
  - DRUG INEFFECTIVE [None]
  - THROMBOSIS [None]
